FAERS Safety Report 23640939 (Version 2)
Quarter: 2024Q1

REPORT INFORMATION
  Report Type: Other
  Country: MX (occurrence: None)
  Receive Date: 20240318
  Receipt Date: 20240321
  Transmission Date: 20240409
  Serious: No
  Sender: FDA-Public Use
  Company Number: MX-ROCHE-3526790

PATIENT
  Age: 41 Year
  Sex: Female
  Weight: 56 kg

DRUGS (2)
  1. OCREVUS [Suspect]
     Active Substance: OCRELIZUMAB
     Indication: Multiple sclerosis
     Route: 042
     Dates: start: 20200624
  2. SOLIFENACIN\TAMSULOSIN [Concomitant]
     Active Substance: SOLIFENACIN\TAMSULOSIN

REACTIONS (19)
  - Neutrophil count increased [Unknown]
  - Lymphocyte count decreased [Unknown]
  - Eosinophil count increased [Unknown]
  - Blood urea nitrogen/creatinine ratio increased [Unknown]
  - Blood osmolarity increased [Unknown]
  - High density lipoprotein increased [Unknown]
  - C-reactive protein increased [Unknown]
  - Transferrin saturation decreased [Unknown]
  - Urine abnormality [Unknown]
  - Protein urine present [Unknown]
  - Haemoglobin urine present [Unknown]
  - Nitrite urine present [Unknown]
  - White blood cells urine positive [Unknown]
  - Red blood cells urine positive [Unknown]
  - Bacterial test positive [Unknown]
  - Urinary sediment present [Unknown]
  - Culture urine positive [Unknown]
  - Urinary tract infection [Not Recovered/Not Resolved]
  - Blood creatinine increased [Unknown]

NARRATIVE: CASE EVENT DATE: 20240308
